FAERS Safety Report 17864819 (Version 5)
Quarter: 2020Q3

REPORT INFORMATION
  Report Type: Report from Study
  Country: CA (occurrence: CA)
  Receive Date: 20200605
  Receipt Date: 20200717
  Transmission Date: 20201103
  Serious: Yes (Death, Other)
  Sender: FDA-Public Use
  Company Number: CA-HLS-202000676

PATIENT
  Age: 73 Year
  Sex: Female

DRUGS (20)
  1. INSPIOLTO RESPIMAT AEROSOL SOLUTION [Concomitant]
     Dosage: 2 INHALATION ORALLY ONE TIME A DAY
     Route: 065
  2. BENZTROPINE MAAYLATE [Concomitant]
     Dosage: AS NEEDED
     Route: 048
  3. VITAMIN D [Concomitant]
     Active Substance: VITAMIN D NOS
     Dosage: 2 TABLET BY MOUTH ONE TIME A DAY
     Route: 065
  4. HALOPERIDOL. [Concomitant]
     Active Substance: HALOPERIDOL
     Indication: AGITATION
     Dosage: AS NEEDED IF QUETIAPINE NOT EFFECTIVE AFTER 1 HOUR
     Route: 065
  5. SALBUTAMOL HFA AEROSOL SOLUTION [Concomitant]
     Dosage: 2 PUFF INHALED ORALLY EVERY 4 HOURS AS NEEDED.
     Route: 065
  6. FLEET ENEMA [Concomitant]
     Active Substance: SODIUM PHOSPHATE, DIBASIC\SODIUM PHOSPHATE, MONOBASIC
     Dosage: 1 APPLICATION RECTALLY AS NEEDED FOR 3 DAYS
     Route: 065
  7. BISACODYL. [Concomitant]
     Active Substance: BISACODYL
     Dosage: AS NEEDED
     Route: 054
  8. COLACE [Concomitant]
     Active Substance: DOCUSATE SODIUM
     Dosage: 2 AS NEEDED
     Route: 048
  9. ACETAMINOPHEN. [Concomitant]
     Active Substance: ACETAMINOPHEN
     Dosage: 1 AS NEEDED
     Route: 054
  10. CLOZARIL [Suspect]
     Active Substance: CLOZAPINE
     Indication: SCHIZOPHRENIA
     Dosage: 75 MG BID AND 200 MG QHS?25 MG (3 TABLETS BD)?100 MG (2 TABLETS AT BEDTIME0
     Route: 048
     Dates: start: 19951024, end: 20200531
  11. QUETIAPINE. [Concomitant]
     Active Substance: QUETIAPINE
     Indication: AGITATION
     Dosage: AS NEEDED
     Route: 065
  12. ACETAMINOPHEN. [Concomitant]
     Active Substance: ACETAMINOPHEN
     Dosage: AS NEEDED
     Route: 048
  13. QUETIAPINE. [Concomitant]
     Active Substance: QUETIAPINE
     Indication: AGITATION
     Dosage: AT BEDTIME
     Route: 048
  14. SENOKOL [Concomitant]
     Dosage: AT BEDTIME
     Route: 065
  15. SYNTHROID [Concomitant]
     Active Substance: LEVOTHYROXINE SODIUM
     Indication: HYPOTHYROIDISM
     Route: 048
  16. ANUSOL NOS [Concomitant]
     Active Substance: BALSAM PERU\BENZYL BENZOATE\BISMUTH HYDROXIDE\BISMUTH SUBGALLATE\HYDROCORTISONE ACETATE\ZINC OXIDE
     Indication: HAEMORRHOIDS
     Dosage: APPLY WITH EACH BOWEL MOVEMENT AS NEEDED.
     Route: 065
  17. METFORMIN FC [Concomitant]
     Dosage: 0.5 TABLET TWO TIMES A DAY
     Route: 065
  18. PEGLYTE SOLUTION [Concomitant]
     Dosage: AS NEEDED
     Route: 048
  19. HALOPERIDOL. [Concomitant]
     Active Substance: HALOPERIDOL
     Indication: AGITATION
     Dosage: 2 TABLETS TWO TIMES A DAY AS NEEDED
     Route: 065
  20. LACTULOSE SOLUTION [Concomitant]
     Active Substance: LACTULOSE
     Route: 048

REACTIONS (7)
  - Neutrophil count increased [Unknown]
  - Pulmonary embolism [Fatal]
  - Sepsis [Unknown]
  - White blood cell count increased [Unknown]
  - Respiratory failure [Fatal]
  - Pneumonia aspiration [Fatal]
  - Haemoglobin decreased [Unknown]

NARRATIVE: CASE EVENT DATE: 2018
